FAERS Safety Report 9866811 (Version 3)
Quarter: 2014Q2

REPORT INFORMATION
  Report Type: Report from Study
  Country: DE (occurrence: DE)
  Receive Date: 20140204
  Receipt Date: 20140403
  Transmission Date: 20141212
  Serious: Yes (Death)
  Sender: FDA-Public Use
  Company Number: DE-ROCHE-1338940

PATIENT
  Age: 68 Year
  Sex: Male
  Weight: 74.5 kg

DRUGS (4)
  1. CAPECITABINE [Suspect]
     Indication: COLORECTAL CANCER METASTATIC
     Dosage: LAST DOSE PRIOR TO SAE WAS 19/JAN/2014
     Route: 048
     Dates: start: 20120402, end: 20140119
  2. BEVACIZUMAB [Suspect]
     Indication: COLORECTAL CANCER METASTATIC
     Dosage: LAST DOSE PRIOR TO THE SAE WAS 06/JAN/2014
     Route: 042
     Dates: start: 20120402, end: 20140106
  3. OXALIPLATIN [Suspect]
     Indication: COLORECTAL CANCER METASTATIC
     Dosage: LAST DOSE PRIOR TO SAE WAS 27/AUG/2012
     Route: 042
     Dates: start: 20120402
  4. PANTOPRAZOLE [Concomitant]
     Route: 065
     Dates: start: 20140120, end: 201401

REACTIONS (1)
  - Circulatory collapse [Fatal]
